FAERS Safety Report 4779178-6 (Version None)
Quarter: 2005Q3

REPORT INFORMATION
  Report Type: 
  Country: None (occurrence: None)
  Receive Date: 20050923
  Receipt Date: 20050908
  Transmission Date: 20060218
  Serious: Yes (Other)
  Sender: FDA-Public Use
  Company Number: 2005-0008680

PATIENT
  Age: 27 Year
  Sex: Male
  Weight: 121.1104 kg

DRUGS (14)
  1. TRUVADA [Suspect]
     Indication: HIV INFECTION
     Dosage: 1 DOSAGE FORMS, 1 IN 1 D, ORAL
     Route: 048
     Dates: start: 20050103, end: 20050901
  2. SUSTIVA [Concomitant]
  3. CARDURA [Concomitant]
  4. NOVOLOG [Concomitant]
  5. TOPROL XL (METOPROLOL SUCCINATE) (TABLET) [Concomitant]
  6. ATROVENT (IPRATROPIUM BROMIDE) (INHALATION VAPOUR, LIQUID) [Concomitant]
  7. ALLEGRA (FEXOFENADINE HYDROCHLORIDE) (TABLET) [Concomitant]
  8. PRINIVIL [Concomitant]
  9. PROTONIX [Concomitant]
  10. NAFTIN (NAFTIFINE HYDROCHLORIDE) (GEL) [Concomitant]
  11. LOMOTIL (LOMOTIL) (TABLET) [Concomitant]
  12. ESGIC-PLUS (AXOTAL/OLD FORM/) (CAPSULE) [Concomitant]
  13. SULAR (NISOLDIPINE) (TABLET) [Concomitant]
  14. GLUCOTROL XL (GLIPIZIDE) (TABLET) [Concomitant]

REACTIONS (10)
  - ACIDOSIS [None]
  - ASPARTATE AMINOTRANSFERASE INCREASED [None]
  - BLOOD ALKALINE PHOSPHATASE INCREASED [None]
  - BLOOD CALCIUM INCREASED [None]
  - BLOOD CHLORIDE DECREASED [None]
  - BLOOD CREATININE INCREASED [None]
  - BLOOD GLUCOSE INCREASED [None]
  - BLOOD LACTIC ACID INCREASED [None]
  - CARBON DIOXIDE DECREASED [None]
  - LACTIC ACIDOSIS [None]
